FAERS Safety Report 11177970 (Version 1)
Quarter: 2015Q2

REPORT INFORMATION
  Report Type: Spontaneous
  Country: US (occurrence: US)
  Receive Date: 20150610
  Receipt Date: 20150610
  Transmission Date: 20150821
  Serious: No
  Sender: FDA-Public Use
  Company Number: US-PFIZER INC-2015191258

PATIENT
  Age: 68 Year
  Sex: Female

DRUGS (1)
  1. LIPITOR [Suspect]
     Active Substance: ATORVASTATIN CALCIUM
     Dosage: 20 MG, 1X/DAY
     Route: 048
     Dates: start: 20120808

REACTIONS (8)
  - Lipoma [Unknown]
  - Pain [Unknown]
  - Dermal cyst [Unknown]
  - Hypertension [Unknown]
  - Obesity [Unknown]
  - Back pain [Unknown]
  - Rosacea [Unknown]
  - Anxiety [Unknown]

NARRATIVE: CASE EVENT DATE: 20121127
